FAERS Safety Report 10657865 (Version 1)
Quarter: 2014Q4

REPORT INFORMATION
  Report Type: Spontaneous
  Country: US (occurrence: None)
  Receive Date: 20141215
  Receipt Date: 20141215
  Transmission Date: 20150529
  Serious: Yes (Disabling, Other)
  Sender: FDA-Public Use
  Company Number: US2014GSK032773

PATIENT
  Sex: Female

DRUGS (6)
  1. SIMVASTATIN. [Concomitant]
     Active Substance: SIMVASTATIN
  2. CONTAC COLD AND FLU - DAY AND NIGHT [Suspect]
     Active Substance: ACETAMINOPHEN\CHLORPHENIRAMINE MALEATE\PHENYLEPHRINE HYDROCHLORIDE
     Indication: NASAL CONGESTION
     Route: 048
  3. MECLIZINE (MECLOZINE) [Concomitant]
  4. CONTAC COLD AND FLU - DAY AND NIGHT [Suspect]
     Active Substance: ACETAMINOPHEN\CHLORPHENIRAMINE MALEATE\PHENYLEPHRINE HYDROCHLORIDE
     Indication: RHINORRHOEA
     Route: 048
  5. CONTAC COLD AND FLU - DAY AND NIGHT [Suspect]
     Active Substance: ACETAMINOPHEN\CHLORPHENIRAMINE MALEATE\PHENYLEPHRINE HYDROCHLORIDE
     Indication: SNEEZING
     Route: 048
  6. THERAFLU (CHLORPHENAMINE MALEATE + PARACETAMOL + PSEUDOEPHEDRINE HYDROCHLORIDE) [Concomitant]

REACTIONS (7)
  - Lymphadenectomy [None]
  - Ovarian cancer [None]
  - Sleep apnoea syndrome [None]
  - Panic attack [None]
  - Disability [None]
  - Fluid retention [None]
  - Drug administration error [None]

NARRATIVE: CASE EVENT DATE: 2011
